FAERS Safety Report 15669388 (Version 1)
Quarter: 2018Q4

REPORT INFORMATION
  Report Type: Spontaneous
  Country: CH (occurrence: CH)
  Receive Date: 20181129
  Receipt Date: 20181129
  Transmission Date: 20190205
  Serious: Yes (Life-Threatening, Hospitalization)
  Sender: FDA-Public Use
  Company Number: CH-TEVA-2018-CH-980130

PATIENT
  Age: 42 Year
  Sex: Male
  Weight: 79 kg

DRUGS (7)
  1. REMIFENTANIL [Suspect]
     Active Substance: REMIFENTANIL
     Indication: ANAESTHESIA
     Dosage: 4-8 NG/ML (FOR ANAESTHESIA MAINTENANCE).
     Route: 042
  2. LIDOCAINE HYDROCHLORIDE AND EPINEPHRINE BITARTRATE [Suspect]
     Active Substance: EPINEPHRINE BITARTRATE\LIDOCAINE HYDROCHLORIDE
     Indication: LOCAL ANAESTHESIA
     Dosage: LIDOCAINE/EPINEPHRINE 1:1000 MIXTURE.
     Route: 050
  3. ATRACURIUM [Concomitant]
     Active Substance: ATRACURIUM
     Indication: ANAESTHESIA
     Dosage: FOR INDUCTION OF ANAESTHESIA.
     Route: 040
  4. REMIFENTANIL [Suspect]
     Active Substance: REMIFENTANIL
     Indication: ANAESTHESIA
     Dosage: TARGET CONTROLLED INFUSION OF REMIFENTANIL 0.5 NG/ML (FOR INDUCTION OF ANAESTHESIA).
     Route: 041
  5. FENTANYL. [Suspect]
     Active Substance: FENTANYL
     Indication: ANAESTHESIA
     Dosage: FOR INDUCTION OF ANAESTHESIA.
     Route: 040
  6. PROPOFOL. [Concomitant]
     Active Substance: PROPOFOL
     Indication: ANAESTHESIA
     Dosage: 3-5 MICROG/ML (FOR ANAESTHESIA MAINTENANCE).
     Route: 042
  7. PROPOFOL. [Concomitant]
     Active Substance: PROPOFOL
     Indication: ANAESTHESIA
     Dosage: TARGET CONTROLLED INFUSION OF PROPOFOL 9 MICROG/ML (FOR ANAESTHESIA INDUCTION).
     Route: 041

REACTIONS (4)
  - Sinus arrest [Recovered/Resolved]
  - Bradycardia [Recovered/Resolved]
  - Trigemino-cardiac reflex [Recovered/Resolved]
  - Cardiac arrest [Recovered/Resolved]
